FAERS Safety Report 4595431-3 (Version None)
Quarter: 2005Q1

REPORT INFORMATION
  Report Type: 
  Country: None (occurrence: None)
  Receive Date: 20050224
  Receipt Date: 20050203
  Transmission Date: 20050727
  Serious: Yes (Hospitalization, Other)
  Sender: FDA-Public Use
  Company Number: US_0407104132

PATIENT
  Sex: Male
  Weight: 75 kg

DRUGS (5)
  1. ZYPREXA [Suspect]
     Dates: start: 19970101
  2. LOPID [Concomitant]
  3. TRAZADONE (TRAZODONE) [Concomitant]
  4. LIPITOR [Concomitant]
  5. PAXIL [Concomitant]

REACTIONS (18)
  - ARTHRALGIA [None]
  - BACK PAIN [None]
  - BLOOD CHOLESTEROL INCREASED [None]
  - BLOOD TRIGLYCERIDES INCREASED [None]
  - DEAFNESS [None]
  - DIABETES MELLITUS [None]
  - EAR PAIN [None]
  - FALL [None]
  - HAEMORRHOIDS [None]
  - HEADACHE [None]
  - HYPERLIPIDAEMIA [None]
  - NEPHROLITHIASIS [None]
  - OBESITY [None]
  - PANCREATITIS [None]
  - PROTEIN URINE PRESENT [None]
  - RED BLOOD CELLS URINE POSITIVE [None]
  - RENAL COLIC [None]
  - WHITE BLOOD CELLS URINE POSITIVE [None]
